FAERS Safety Report 5743904-X (Version None)
Quarter: 2008Q2

REPORT INFORMATION
  Report Type: 
  Country: None (occurrence: None)
  Receive Date: 20080516
  Receipt Date: 20080506
  Transmission Date: 20081010
  Serious: Yes (Life-Threatening, Hospitalization)
  Sender: FDA-Public Use
  Company Number: ADE2008-0185

PATIENT
  Age: 74 Year
  Sex: Male
  Weight: 82.7 kg

DRUGS (6)
  1. SIMVASTATIN [Suspect]
     Indication: CARDIOVASCULAR EVENT PROPHYLAXIS
     Dosage: 80MG, ORAL
     Route: 048
     Dates: start: 20071029
  2. ATENOLOL [Concomitant]
  3. ATORVASTATIN CALCIUM [Concomitant]
  4. BENDROFLUMETHIAZIDE [Concomitant]
  5. CHLORMADINONE ACETATE TAB [Concomitant]
  6. GOSERELIN [Concomitant]

REACTIONS (2)
  - GLOMERULAR FILTRATION RATE DECREASED [None]
  - RHABDOMYOLYSIS [None]
